FAERS Safety Report 8500442-9 (Version None)
Quarter: 2012Q3

REPORT INFORMATION
  Report Type: 
  Country: None (occurrence: None)
  Receive Date: 20120710
  Receipt Date: 20120705
  Transmission Date: 20120928
  Serious: Yes (Hospitalization)
  Sender: FDA-Public Use
  Company Number: DE-GLAXOSMITHKLINE-B0798362B

PATIENT
  Sex: Female
  Weight: 49 kg

DRUGS (6)
  1. TRASTUZUMAB [Suspect]
     Indication: BREAST NEOPLASM
     Dosage: 408MG EVERY 3 WEEKS
     Route: 042
     Dates: start: 20120319
  2. FILGRASTIM [Concomitant]
     Dates: start: 20120627, end: 20120628
  3. TAXOL [Suspect]
     Indication: BREAST NEOPLASM
     Dosage: 124MG WEEKLY
     Route: 042
     Dates: start: 20120319
  4. DOXORUBICIN HCL [Suspect]
     Indication: BREAST NEOPLASM
     Dosage: 31MG WEEKLY
     Route: 042
     Dates: start: 20120319
  5. CARBOPLATIN [Suspect]
     Indication: BREAST NEOPLASM
     Dosage: 270MG WEEKLY
     Route: 042
     Dates: start: 20120319
  6. LAPATINIB [Suspect]
     Indication: BREAST NEOPLASM
     Dosage: 750MG PER DAY
     Route: 048
     Dates: start: 20120319, end: 20120601

REACTIONS (2)
  - DYSPNOEA [None]
  - PNEUMONIA [None]
